FAERS Safety Report 8601226-3 (Version None)
Quarter: 2012Q3

REPORT INFORMATION
  Report Type: 
  Country: None (occurrence: None)
  Receive Date: 20120806
  Receipt Date: 20120806
  Transmission Date: 20120928
  Serious: Yes (Other)
  Sender: FDA-Public Use
  Company Number: None

PATIENT
  Sex: Female
  Weight: 44.7 kg

DRUGS (1)
  1. LUPRON DEPOT [Suspect]

REACTIONS (2)
  - INCORRECT DOSE ADMINISTERED [None]
  - DRUG DISPENSING ERROR [None]
